FAERS Safety Report 16113085 (Version 1)
Quarter: 2019Q1

REPORT INFORMATION
  Report Type: Spontaneous
  Country: AU (occurrence: AU)
  Receive Date: 20190325
  Receipt Date: 20190325
  Transmission Date: 20190418
  Serious: Yes (Other)
  Sender: FDA-Public Use
  Company Number: AU-009507513-1903AUS009525

PATIENT
  Sex: Male

DRUGS (6)
  1. SIROLIMUS. [Suspect]
     Active Substance: SIROLIMUS
     Indication: OBLITERATIVE BRONCHIOLITIS
     Dosage: 1 MILLIGRAM, BID
     Dates: start: 2019
  2. JAKAVI [Suspect]
     Active Substance: RUXOLITINIB
     Indication: CHRONIC GRAFT VERSUS HOST DISEASE
     Dosage: 5 MILLIGRAM, BID, 3 MONTHS INITIALLY
     Dates: start: 2019
  3. METHYLPREDNISOLONE. [Suspect]
     Active Substance: METHYLPREDNISOLONE
     Indication: OBLITERATIVE BRONCHIOLITIS
     Dosage: 10 MILLIGRAM/KILOGRAM/DAY, 4 DAYS , Q2-3 WEEKS
     Dates: start: 2019
  4. MYCOPHENOLATE MOFETIL. [Concomitant]
     Active Substance: MYCOPHENOLATE MOFETIL
     Indication: GRAFT VERSUS HOST DISEASE
     Dosage: UNK
     Dates: start: 2019
  5. AZITHROMYCIN ANHYDROUS. [Suspect]
     Active Substance: AZITHROMYCIN ANHYDROUS
     Indication: OBLITERATIVE BRONCHIOLITIS
     Dosage: 250 MILLIGRAM 3X PER WEEK
     Dates: start: 2019
  6. MONTELUKAST SODIUM. [Suspect]
     Active Substance: MONTELUKAST SODIUM
     Indication: OBLITERATIVE BRONCHIOLITIS
     Dosage: 10 MILLIGRAM, QD
     Dates: start: 2019

REACTIONS (1)
  - Lung disorder [Unknown]

NARRATIVE: CASE EVENT DATE: 2019
